FAERS Safety Report 4620069-9 (Version None)
Quarter: 2005Q1

REPORT INFORMATION
  Report Type: 
  Country: None (occurrence: None)
  Receive Date: 20050327
  Receipt Date: 20050327
  Transmission Date: 20050727
  Serious: No
  Sender: FDA-Public Use
  Company Number: None

PATIENT

DRUGS (2)
  1. DILACOR XR [Suspect]
  2. DILACOR XR [Suspect]
     Dosage: TABLET

REACTIONS (10)
  - BLOOD POTASSIUM DECREASED [None]
  - CHEST PAIN [None]
  - HEADACHE [None]
  - INFUSION SITE REACTION [None]
  - MEDICATION ERROR [None]
  - NAUSEA [None]
  - THERAPEUTIC AGENT TOXICITY [None]
  - TREATMENT NONCOMPLIANCE [None]
  - VOMITING [None]
  - WHITE BLOOD CELL COUNT DECREASED [None]
